FAERS Safety Report 4457610-5 (Version None)
Quarter: 2004Q3

REPORT INFORMATION
  Report Type: 
  Country: None (occurrence: None)
  Receive Date: 20040922
  Receipt Date: 20040910
  Transmission Date: 20050211
  Serious: Yes (Life-Threatening)
  Sender: FDA-Public Use
  Company Number: 2004233364FR

PATIENT
  Age: 66 Year
  Sex: Female
  Weight: 62 kg

DRUGS (9)
  1. CELEBREX [Suspect]
     Dosage: 200 MG, QD, ORAL
     Route: 048
     Dates: end: 20040624
  2. ARAVA [Suspect]
     Dosage: 20 MG, QD, ORAL
     Route: 048
     Dates: start: 20040315
  3. PROPOFAN (CARBASALATE CALCIUM, DEXTROPROPOXYPHENE) [Concomitant]
  4. PLAVIX [Concomitant]
  5. PRAVASTATIN [Concomitant]
  6. AMLODIPINE BESYLATE [Concomitant]
  7. LASIX [Concomitant]
  8. RAMIPRIL [Concomitant]
  9. BISOPROLOL FUMARATE [Concomitant]

REACTIONS (2)
  - CONGESTIVE CARDIOMYOPATHY [None]
  - VENTRICULAR HYPOKINESIA [None]
